FAERS Safety Report 24338631 (Version 2)
Quarter: 2025Q2

REPORT INFORMATION
  Report Type: Spontaneous
  Country: DE (occurrence: DE)
  Receive Date: 20240919
  Receipt Date: 20250626
  Transmission Date: 20250717
  Serious: Yes (Life-Threatening, Hospitalization, Other)
  Sender: SANDOZ
  Company Number: DE-NOVPHSZ-PHHY2017DE123411

PATIENT
  Age: 1 Year
  Sex: Male
  Weight: 6.6 kg

DRUGS (6)
  1. THYMOCYTE IMMUNE GLOBULIN NOS [Suspect]
     Active Substance: THYMOCYTE IMMUNE GLOBULIN NOS
     Indication: Prophylaxis against graft versus host disease
     Route: 065
  2. CYCLOSPORINE [Suspect]
     Active Substance: CYCLOSPORINE
     Indication: Prophylaxis against graft versus host disease
     Route: 065
  3. FLUDARABINE [Suspect]
     Active Substance: FLUDARABINE PHOSPHATE
     Indication: Bone marrow conditioning regimen
     Route: 065
  4. METHOTREXATE [Suspect]
     Active Substance: METHOTREXATE
     Indication: Prophylaxis against graft versus host disease
     Route: 065
  5. THIOTEPA [Suspect]
     Active Substance: THIOTEPA
     Indication: Bone marrow conditioning regimen
     Route: 065
  6. TREOSULFAN [Suspect]
     Active Substance: TREOSULFAN
     Indication: Bone marrow conditioning regimen
     Route: 065

REACTIONS (14)
  - Mucosal toxicity [Recovered/Resolved]
  - Bronchitis [Recovered/Resolved]
  - Coronavirus test positive [Recovered/Resolved]
  - Influenza virus test positive [Recovered/Resolved]
  - Pyrexia [Recovered/Resolved]
  - Adenovirus test positive [Recovered/Resolved]
  - Respiratory syncytial virus infection [Recovered/Resolved]
  - Diarrhoea [Recovered/Resolved]
  - Gastroenteritis rotavirus [Recovered/Resolved]
  - Metabolic acidosis [Recovered/Resolved]
  - Skin toxicity [Recovered/Resolved]
  - Vomiting [Recovered/Resolved]
  - Nausea [Recovered/Resolved]
  - Renal function test abnormal [Recovered/Resolved]
